FAERS Safety Report 5448106-2 (Version None)
Quarter: 2007Q3

REPORT INFORMATION
  Report Type: 
  Country: None (occurrence: None)
  Receive Date: 20070803
  Receipt Date: 20070604
  Transmission Date: 20080115
  Serious: Yes (Hospitalization)
  Sender: FDA-Public Use
  Company Number: 200711752BWH

PATIENT
  Age: 78 Year
  Sex: Male

DRUGS (2)
  1. SORAFENIB [Suspect]
     Indication: METASTASES TO LIVER
     Dosage: 400 MG, BID, ORAL
     Route: 048
     Dates: start: 20070321
  2. SORAFENIB [Suspect]
     Indication: RENAL CELL CARCINOMA STAGE UNSPECIFIED
     Dosage: 400 MG, BID, ORAL
     Route: 048
     Dates: start: 20070321

REACTIONS (1)
  - CARDIAC FAILURE CONGESTIVE [None]
